FAERS Safety Report 6338815-5 (Version None)
Quarter: 2009Q3

REPORT INFORMATION
  Report Type: 
  Country: None (occurrence: None)
  Receive Date: 20090903
  Receipt Date: 20090615
  Transmission Date: 20100115
  Serious: No
  Sender: FDA-Public Use
  Company Number: US-KINGPHARMUSA00001-K200900715

PATIENT
  Age: 48 Year
  Sex: Female
  Weight: 63.492 kg

DRUGS (2)
  1. SONATA [Suspect]
     Indication: INSOMNIA
     Dosage: 10 MG, QHS
     Route: 048
     Dates: start: 20090612
  2. CITALOPRAM [Concomitant]
     Indication: ANXIETY

REACTIONS (3)
  - FEELING ABNORMAL [None]
  - MIDDLE INSOMNIA [None]
  - SOMNAMBULISM [None]
